FAERS Safety Report 6584084-0 (Version None)
Quarter: 2010Q1

REPORT INFORMATION
  Report Type: 
  Country: None (occurrence: None)
  Receive Date: 20100213
  Receipt Date: 20100213
  Transmission Date: 20100710
  Serious: Yes (Hospitalization)
  Sender: FDA-Public Use
  Company Number: None

PATIENT
  Sex: Female
  Weight: 65.953 kg

DRUGS (11)
  1. ABRAXANE [Suspect]
     Indication: BREAST CANCER METASTATIC
     Dosage: 314 MG Q 3 WEEKS- IV DRIP
     Route: 041
     Dates: start: 20090831, end: 20100106
  2. BEVACIZUMAB 400 MG/VIAL GENENTECH [Suspect]
     Indication: BREAST CANCER METASTATIC
     Dosage: 990 MG Q 3 WEEKS IV DRIP
     Route: 041
     Dates: start: 20090831, end: 20100106
  3. QUINAPRIL [Concomitant]
  4. SIMVASTATIN [Concomitant]
  5. POTASSIUM CHLORIDE [Concomitant]
  6. OMEPRAZOLE [Concomitant]
  7. REGLAN [Concomitant]
  8. ARANESP [Concomitant]
  9. NEUTONTI [Concomitant]
  10. PAMIDRONATE DISODIUM [Concomitant]
  11. ZOFRAN [Concomitant]

REACTIONS (1)
  - HYPERKALAEMIA [None]
